FAERS Safety Report 5091332-5 (Version None)
Quarter: 2006Q3

REPORT INFORMATION
  Report Type: 
  Country: None (occurrence: None)
  Receive Date: 20060829
  Receipt Date: 20060116
  Transmission Date: 20061208
  Serious: No
  Sender: FDA-Public Use
  Company Number: US-GLAXOSMITHKLINE-A0589407A

PATIENT
  Age: 68 Year
  Sex: Female

DRUGS (11)
  1. BECONASE [Suspect]
     Dosage: 42MCG TWICE PER DAY
     Route: 045
  2. MAXZIDE [Concomitant]
  3. DONNATAL [Concomitant]
  4. PREVACID [Concomitant]
  5. SINGULAIR [Concomitant]
  6. POTASSIUM [Concomitant]
  7. VITAMIN D [Concomitant]
  8. CALCIUM MAGNESIUM [Concomitant]
  9. UNITHROID [Concomitant]
  10. VITAMIN E [Concomitant]
  11. ASCORBIC ACID [Concomitant]

REACTIONS (2)
  - DRUG INEFFECTIVE [None]
  - PHARMACEUTICAL PRODUCT COMPLAINT [None]
